FAERS Safety Report 8461894-6 (Version None)
Quarter: 2012Q2

REPORT INFORMATION
  Report Type: 
  Country: None (occurrence: None)
  Receive Date: 20120323
  Receipt Date: 20111222
  Transmission Date: 20120825
  Serious: Yes (Disabling)
  Sender: FDA-Public Use
  Company Number: 163-21880-11093117

PATIENT
  Age: 78 Year
  Sex: Male
  Weight: 71.7 kg

DRUGS (4)
  1. LOPERAMIDE [Concomitant]
  2. REVLIMID [Suspect]
     Indication: MULTIPLE MYELOMA
     Dosage: 5 MG, 1 IN 1 D, PO
     Route: 048
     Dates: start: 20111101, end: 20111115
  3. DEXAMETHASONE [Concomitant]
  4. REVLIMID [Suspect]

REACTIONS (5)
  - FATIGUE [None]
  - OEDEMA PERIPHERAL [None]
  - GROIN PAIN [None]
  - DIARRHOEA [None]
  - PRURITUS [None]
